FAERS Safety Report 5631268-1 (Version None)
Quarter: 2008Q1

REPORT INFORMATION
  Report Type: 
  Country: None (occurrence: None)
  Receive Date: 20080214
  Receipt Date: 20080204
  Transmission Date: 20080703
  Serious: Yes (Death)
  Sender: FDA-Public Use
  Company Number: 2008-01143

PATIENT
  Age: 32 Year
  Sex: Female

DRUGS (11)
  1. FIORICET [Suspect]
  2. DIPHENHYDRAMINE HCL [Suspect]
  3. VERAPAMIL [Suspect]
  4. PROMETHAZINE [Suspect]
  5. TEMAZEPAM [Suspect]
  6. ZOLPIDEM TARTRATE [Suspect]
  7. CARISOPRODOL [Suspect]
  8. MORPHINE SULFATE [Suspect]
  9. OXYCODONE AND ACETAMINOPHEN [Suspect]
  10. CYCLOBENZAPRINE HYDROCHLORIDE [Suspect]
  11. UNKNOWN DRUG [Suspect]

REACTIONS (1)
  - CARDIO-RESPIRATORY ARREST [None]
